FAERS Safety Report 11518836 (Version 5)
Quarter: 2016Q1

REPORT INFORMATION
  Report Type: Spontaneous
  Country: US (occurrence: US)
  Receive Date: 20150917
  Receipt Date: 20160111
  Transmission Date: 20160525
  Serious: No
  Sender: FDA-Public Use
  Company Number: US-PFIZER INC-2015298920

PATIENT
  Age: 65 Year
  Sex: Male
  Weight: 97.51 kg

DRUGS (6)
  1. SUTENT [Suspect]
     Active Substance: SUNITINIB MALATE
     Indication: RENAL CANCER METASTATIC
     Dosage: 50 MG, UNK
     Dates: start: 201303
  2. AMLODIPINE [Concomitant]
     Active Substance: AMLODIPINE BESYLATE
     Dosage: UNK
  3. LEVOTHYROXINE. [Concomitant]
     Active Substance: LEVOTHYROXINE
     Dosage: UNK
  4. ALLOPURINOL. [Concomitant]
     Active Substance: ALLOPURINOL
     Dosage: UNK
  5. SUTENT [Suspect]
     Active Substance: SUNITINIB MALATE
     Dosage: 37.5 MG, CYCLIC (2 WEEKS ON/1 WEEK OFF)
     Dates: start: 20130318, end: 20160104
  6. PROTONIX [Concomitant]
     Active Substance: PANTOPRAZOLE SODIUM
     Dosage: UNK

REACTIONS (9)
  - Diarrhoea [Unknown]
  - Pain in extremity [Not Recovered/Not Resolved]
  - Gait disturbance [Unknown]
  - Liver function test increased [Recovered/Resolved]
  - Weight increased [Recovering/Resolving]
  - Yellow skin [Unknown]
  - Hypertension [Unknown]
  - Pain [Unknown]
  - Hair colour changes [Unknown]
